FAERS Safety Report 9478440 (Version 1)
Quarter: 2013Q3

REPORT INFORMATION
  Report Type: Spontaneous
  Country: AU (occurrence: AU)
  Receive Date: 20130827
  Receipt Date: 20130827
  Transmission Date: 20140515
  Serious: Yes (Hospitalization, Other)
  Sender: FDA-Public Use
  Company Number: AU-ELI_LILLY_AND_COMPANY-AU201308004531

PATIENT
  Age: 99 Year
  Sex: Female

DRUGS (2)
  1. CYMBALTA [Suspect]
     Dosage: UNK, UNKNOWN
     Route: 065
  2. VALDOXAN [Suspect]
     Dosage: UNK, UNKNOWN
     Route: 048

REACTIONS (4)
  - Loss of consciousness [Unknown]
  - Head injury [Unknown]
  - Convulsion [Unknown]
  - Fall [Recovered/Resolved]
